FAERS Safety Report 17204176 (Version 1)
Quarter: 2019Q4

REPORT INFORMATION
  Report Type: Spontaneous
  Country: US (occurrence: US)
  Receive Date: 20191226
  Receipt Date: 20191226
  Transmission Date: 20200122
  Serious: No
  Sender: FDA-Public Use
  Company Number: US-SA-2019SA358720

PATIENT
  Age: 62 Year
  Sex: Female

DRUGS (2)
  1. BIOTIN [Concomitant]
     Active Substance: BIOTIN
  2. PRALUENT [Suspect]
     Active Substance: ALIROCUMAB
     Indication: HYPERTRIGLYCERIDAEMIA
     Dosage: 150 MG, QOW
     Route: 058
     Dates: start: 20181130

REACTIONS (4)
  - Upper respiratory tract infection [Recovered/Resolved]
  - Sinusitis [Unknown]
  - Productive cough [Not Recovered/Not Resolved]
  - Nausea [Recovered/Resolved]
